FAERS Safety Report 10332203 (Version 1)
Quarter: 2014Q3

REPORT INFORMATION
  Report Type: Spontaneous
  Country: GB (occurrence: GB)
  Receive Date: 20140722
  Receipt Date: 20140722
  Transmission Date: 20150326
  Serious: Yes (Death, Other)
  Sender: FDA-Public Use
  Company Number: GB-TEVA-493841ISR

PATIENT
  Age: 80 Year
  Sex: Male
  Weight: 80.45 kg

DRUGS (6)
  1. CYCLOPHOSPHAMIDE. [Suspect]
     Active Substance: CYCLOPHOSPHAMIDE
     Indication: MANTLE CELL LYMPHOMA
     Dosage: DOSAGE FORM: UNSPECIFIED, TOTAL DOSE ADMINISTERED THIS COURSE WAS 1455 MG
     Route: 065
     Dates: start: 20070410
  2. RITUXIMAB [Suspect]
     Active Substance: RITUXIMAB
     Indication: MANTLE CELL LYMPHOMA
     Dosage: DOSAGE FORM: UNSPECIFIED, TOTAL DOSE ADMINISTERED THIS COURSE WAS 727.5 MG
     Route: 065
     Dates: start: 20070410
  3. BORTEZOMIB [Suspect]
     Active Substance: BORTEZOMIB
     Indication: MANTLE CELL LYMPHOMA
     Dosage: DOSAGE FORM: TINCTURE, TOTAL DOSE ADMINISTERED THIS COURSE WAS 5.04 MG
     Route: 065
     Dates: start: 20070410
  4. PREDNISONE. [Suspect]
     Active Substance: PREDNISONE
     Indication: MANTLE CELL LYMPHOMA
     Dosage: DOSAGE FORM: UNSPECIFIED, TOTAL DOSE ADMINISTERED THIS COURSE WAS 500 MG
     Route: 065
     Dates: start: 20070410
  5. DOXORUBICIN HYDROCHLORIDE. [Suspect]
     Active Substance: DOXORUBICIN HYDROCHLORIDE
     Indication: MANTLE CELL LYMPHOMA
     Dosage: DOSAGE FORM: LIPOSOME INJECTION, TOTAL DOSE ADMINISTERED THIS COURSE WAS 97 MG
     Route: 042
     Dates: start: 20070410
  6. VINCRISTINE [Suspect]
     Active Substance: VINCRISTINE
     Indication: MANTLE CELL LYMPHOMA
     Dosage: DOSAGE FORM: UNSPECIFIED, TOTAL DOSE ADMINISTERED THIS COURSE WAS 2 MG
     Route: 065
     Dates: start: 20070410

REACTIONS (4)
  - Pneumonia [Recovered/Resolved]
  - Atrioventricular block complete [Fatal]
  - Atrial fibrillation [Unknown]
  - Neutropenia [Recovered/Resolved]

NARRATIVE: CASE EVENT DATE: 20070807
